FAERS Safety Report 18604555 (Version 1)
Quarter: 2020Q4

REPORT INFORMATION
  Report Type: Spontaneous
  Country: US (occurrence: US)
  Receive Date: 20201211
  Receipt Date: 20201211
  Transmission Date: 20210114
  Serious: No
  Sender: FDA-Public Use
  Company Number: US-GLENMARK PHARMACEUTICALS-2020GMK049849

PATIENT

DRUGS (4)
  1. MYRBETRIQ [Concomitant]
     Active Substance: MIRABEGRON
     Indication: INCONTINENCE
     Dosage: UNK
     Route: 065
  2. CRESTOR [Concomitant]
     Active Substance: ROSUVASTATIN CALCIUM
     Indication: BLOOD CHOLESTEROL ABNORMAL
     Dosage: UNK
     Route: 065
  3. TELMISARTAN TABLETS USP, 20 MG [Suspect]
     Active Substance: TELMISARTAN
     Dosage: 10 MILLIGRAM, QW
     Route: 048
     Dates: start: 2020
  4. TELMISARTAN TABLETS USP, 20 MG [Suspect]
     Active Substance: TELMISARTAN
     Indication: BLOOD PRESSURE ABNORMAL
     Dosage: 20 MILLIGRAM, QW
     Route: 048
     Dates: start: 202007, end: 2020

REACTIONS (5)
  - Hypotension [Recovered/Resolved]
  - Depression [Unknown]
  - Product blister packaging issue [Unknown]
  - Dizziness [Not Recovered/Not Resolved]
  - Wrong technique in product usage process [Unknown]

NARRATIVE: CASE EVENT DATE: 2020
